FAERS Safety Report 6531737-6 (Version None)
Quarter: 2010Q1

REPORT INFORMATION
  Report Type: 
  Country: None (occurrence: None)
  Receive Date: 20100107
  Receipt Date: 20100107
  Transmission Date: 20100710
  Serious: Yes (Other)
  Sender: FDA-Public Use
  Company Number: None

PATIENT
  Age: 51 Year
  Sex: Male
  Weight: 78.0187 kg

DRUGS (1)
  1. ZICAM NO DRIP LIQUID NASAL GEL 0.5 FL OZ 31383X EXP 09/11 [Suspect]
     Indication: NASOPHARYNGITIS
     Dosage: DAILY AT NIGHT BEFORE BED
     Dates: start: 20091105, end: 20091110

REACTIONS (8)
  - AGEUSIA [None]
  - ANOSMIA [None]
  - BURNING SENSATION [None]
  - DIZZINESS [None]
  - DYSGEUSIA [None]
  - DYSPNOEA [None]
  - FACE INJURY [None]
  - NASAL INFLAMMATION [None]
